FAERS Safety Report 16271800 (Version 1)
Quarter: 2019Q2

REPORT INFORMATION
  Report Type: Report from Study
  Country: US (occurrence: US)
  Receive Date: 20190506
  Receipt Date: 20190506
  Transmission Date: 20190711
  Serious: Yes (Hospitalization, Other)
  Sender: FDA-Public Use
  Company Number: US-EMD SERONO-E2B_80088557

PATIENT
  Sex: Female

DRUGS (1)
  1. REBIF [Suspect]
     Active Substance: INTERFERON BETA-1A
     Indication: MULTIPLE SCLEROSIS
     Route: 058
     Dates: start: 20150831

REACTIONS (10)
  - Bladder spasm [Unknown]
  - Injection site erythema [Recovering/Resolving]
  - Fall [Unknown]
  - Muscular weakness [Unknown]
  - Device leakage [Recovered/Resolved]
  - Decubitus ulcer [Recovered/Resolved]
  - Nephrolithiasis [Unknown]
  - Lower limb fracture [Recovered/Resolved]
  - Urinary tract infection [Recovered/Resolved]
  - Osteoporosis [Unknown]

NARRATIVE: CASE EVENT DATE: 2016
